FAERS Safety Report 10061559 (Version 2)
Quarter: 2014Q2

REPORT INFORMATION
  Report Type: Spontaneous
  Country: JP (occurrence: JP)
  Receive Date: 20140407
  Receipt Date: 20140525
  Transmission Date: 20141212
  Serious: Yes (Other)
  Sender: FDA-Public Use
  Company Number: JP-MERCK-1404JPN003036

PATIENT
  Sex: 0

DRUGS (4)
  1. PEGINTERFERON ALFA-2B [Suspect]
     Indication: HEPATITIS C
     Dosage: 1.5 MICROGRAM, QW
  2. RIBAVIRIN [Suspect]
     Indication: HEPATITIS C
     Dosage: 200-800 MG/DAY
     Route: 048
  3. TELAPREVIR [Suspect]
     Indication: HEPATITIS C
     Dosage: 1500 MG/DAY
     Route: 065
  4. CYCLOSPORINE [Concomitant]
     Dosage: UNK
     Route: 065

REACTIONS (2)
  - Transfusion [Unknown]
  - Anaemia [Unknown]
